FAERS Safety Report 6963709-1 (Version None)
Quarter: 2010Q3

REPORT INFORMATION
  Report Type: 
  Country: None (occurrence: None)
  Receive Date: 20100902
  Receipt Date: 20100721
  Transmission Date: 20110219
  Serious: Yes (Death, Life-Threatening, Hospitalization, Other)
  Sender: FDA-Public Use
  Company Number: US-BAXTER-2010BH002701

PATIENT
  Age: 65 Year
  Sex: Male
  Weight: 104 kg

DRUGS (23)
  1. HEPARIN SODIUM INJECTION [Suspect]
     Indication: HAEMODIALYSIS
     Route: 010
     Dates: start: 20071128, end: 20071231
  2. HEPARIN SODIUM INJECTION [Suspect]
     Indication: THROMBOSIS PROPHYLAXIS
     Route: 010
     Dates: start: 20071128, end: 20071231
  3. HEPARIN SODIUM INJECTION [Suspect]
     Route: 010
     Dates: start: 20080103, end: 20080103
  4. HEPARIN SODIUM INJECTION [Suspect]
     Route: 010
     Dates: start: 20080103, end: 20080103
  5. HEPARIN SODIUM INJECTION [Suspect]
     Route: 010
     Dates: start: 20080105, end: 20080105
  6. HEPARIN SODIUM INJECTION [Suspect]
     Route: 010
     Dates: start: 20080105, end: 20080105
  7. HEPARIN SODIUM INJECTION [Suspect]
     Route: 041
     Dates: start: 20080105, end: 20080105
  8. HEPARIN SODIUM INJECTION [Suspect]
     Route: 041
     Dates: start: 20080105, end: 20080105
  9. HEPARIN SODIUM INJECTION [Suspect]
     Route: 010
     Dates: start: 20080107, end: 20080107
  10. HEPARIN SODIUM INJECTION [Suspect]
     Route: 010
     Dates: start: 20080107, end: 20080107
  11. HEPARIN SODIUM INJECTION [Suspect]
     Route: 010
     Dates: start: 20080108, end: 20080112
  12. HEPARIN SODIUM INJECTION [Suspect]
     Route: 010
     Dates: start: 20080108, end: 20080112
  13. HEPARIN SODIUM INJECTION [Suspect]
     Route: 041
     Dates: start: 20080115
  14. HEPARIN SODIUM INJECTION [Suspect]
     Route: 041
     Dates: start: 20080115
  15. PANTOPRAZOLE [Concomitant]
     Indication: PRODUCT USED FOR UNKNOWN INDICATION
     Route: 065
  16. ASPIRIN [Concomitant]
     Indication: PRODUCT USED FOR UNKNOWN INDICATION
     Route: 065
  17. MULTI-VITAMINS [Concomitant]
     Indication: PRODUCT USED FOR UNKNOWN INDICATION
     Route: 065
  18. CAPOTEN [Concomitant]
     Indication: PRODUCT USED FOR UNKNOWN INDICATION
     Route: 065
  19. ALDACTONE [Concomitant]
     Indication: PRODUCT USED FOR UNKNOWN INDICATION
     Route: 065
  20. ATACAND [Concomitant]
     Indication: PRODUCT USED FOR UNKNOWN INDICATION
     Route: 065
  21. DEMADEX [Concomitant]
     Indication: PRODUCT USED FOR UNKNOWN INDICATION
     Route: 065
  22. ZOSYN [Concomitant]
     Indication: PRODUCT USED FOR UNKNOWN INDICATION
     Route: 065
  23. WARFARIN SODIUM [Concomitant]
     Indication: PRODUCT USED FOR UNKNOWN INDICATION
     Route: 065

REACTIONS (19)
  - ABDOMINAL WALL HAEMATOMA [None]
  - ACUTE RESPIRATORY FAILURE [None]
  - ANAEMIA [None]
  - BRADYCARDIA [None]
  - CARDIAC FAILURE CONGESTIVE [None]
  - CARDIO-RESPIRATORY ARREST [None]
  - CLOSTRIDIUM DIFFICILE COLITIS [None]
  - DEVICE MALFUNCTION [None]
  - ENCEPHALOPATHY [None]
  - ENTEROCOCCAL INFECTION [None]
  - HAEMORRHAGE [None]
  - HYPERKALAEMIA [None]
  - HYPOTENSION [None]
  - ISCHAEMIC CARDIOMYOPATHY [None]
  - LEFT VENTRICULAR DYSFUNCTION [None]
  - MYOCARDIAL INFARCTION [None]
  - PNEUMONIA [None]
  - SEPSIS [None]
  - THROMBOCYTOPENIA [None]
